FAERS Safety Report 8393218-7 (Version None)
Quarter: 2012Q2

REPORT INFORMATION
  Report Type: 
  Country: None (occurrence: None)
  Receive Date: 20120529
  Receipt Date: 20120515
  Transmission Date: 20120825
  Serious: No
  Sender: FDA-Public Use
  Company Number: US-ABBOTT-12P-163-0935628-00

PATIENT
  Sex: Male
  Weight: 86.26 kg

DRUGS (5)
  1. GLYBURIDE [Concomitant]
     Indication: DIABETES MELLITUS
  2. ANDROGEL [Suspect]
     Indication: BLOOD TESTOSTERONE DECREASED
     Dosage: 2 PUMPS
     Route: 061
     Dates: start: 20120301
  3. METFORMIN HCL [Concomitant]
     Indication: DIABETES MELLITUS
  4. JANUVIA [Concomitant]
     Indication: PRODUCT USED FOR UNKNOWN INDICATION
  5. PRAVASTATIN [Concomitant]
     Indication: PRODUCT USED FOR UNKNOWN INDICATION

REACTIONS (2)
  - FATIGUE [None]
  - BLOOD TESTOSTERONE DECREASED [None]
